FAERS Safety Report 6496416-2 (Version None)
Quarter: 2009Q4

REPORT INFORMATION
  Report Type: 
  Country: None (occurrence: None)
  Receive Date: 20091209
  Receipt Date: 20091125
  Transmission Date: 20100525
  Serious: Yes (Other)
  Sender: FDA-Public Use
  Company Number: 230187J09CAN

PATIENT
  Sex: Female

DRUGS (9)
  1. REBIF [Suspect]
     Indication: MULTIPLE SCLEROSIS
     Dosage: 44 MCG, 3 IN 1 WEEKS
     Dates: start: 20051024
  2. BACLOFEN [Concomitant]
  3. DETROL [Concomitant]
  4. ELAVIL [Concomitant]
  5. HYDROCHLOROTHIAZIDE [Concomitant]
  6. ATACAND [Concomitant]
  7. CELEBREX [Concomitant]
  8. CERC [CERCIN] (DIAZEPAM) [Concomitant]
  9. VITAMIN D AND CALCIUM (CALCIUM WITH VITAMIN D) [Concomitant]

REACTIONS (5)
  - CYSTITIS [None]
  - DIZZINESS [None]
  - HEPATIC ENZYME INCREASED [None]
  - MUSCLE SPASMS [None]
  - PNEUMONIA [None]
